FAERS Safety Report 16390655 (Version 2)
Quarter: 2019Q2

REPORT INFORMATION
  Report Type: Report from Study
  Country: FR (occurrence: FR)
  Receive Date: 20190604
  Receipt Date: 20190627
  Transmission Date: 20190711
  Serious: Yes (Hospitalization)
  Sender: FDA-Public Use
  Company Number: FR-ACTELION-A-NJ2019-191259

PATIENT
  Sex: Female

DRUGS (1)
  1. VENTAVIS [Suspect]
     Active Substance: ILOPROST
     Indication: PULMONARY ARTERIAL HYPERTENSION
     Dosage: 5 MCG, 6 TIMES A DAY
     Route: 055

REACTIONS (1)
  - Investigation [Unknown]
